FAERS Safety Report 5689116-X (Version None)
Quarter: 2008Q1

REPORT INFORMATION
  Report Type: 
  Country: None (occurrence: None)
  Receive Date: 20080331
  Receipt Date: 19830411
  Transmission Date: 20080703
  Serious: Yes (Death)
  Sender: FDA-Public Use
  Company Number: BE-ROCHE-830102166001

PATIENT
  Sex: Male

DRUGS (4)
  1. VALIUM [Suspect]
     Indication: AGITATION
     Route: 030
  2. HALDOL [Suspect]
     Indication: AGITATION
     Route: 030
  3. DROPERIDOL LACTATE [Suspect]
     Indication: AGITATION
     Route: 030
  4. DOMINAL [Suspect]
     Indication: AGITATION
     Route: 030

REACTIONS (1)
  - DEATH [None]
